FAERS Safety Report 7345328-0 (Version None)
Quarter: 2011Q1

REPORT INFORMATION
  Report Type: 
  Country: None (occurrence: None)
  Receive Date: 20110310
  Receipt Date: 20110302
  Transmission Date: 20110831
  Serious: Yes (Hospitalization)
  Sender: FDA-Public Use
  Company Number: US-SANOFI-AVENTIS-2011SA014220

PATIENT
  Age: 60 Year
  Sex: Female

DRUGS (3)
  1. SOLOSTAR [Suspect]
     Indication: TYPE 2 DIABETES MELLITUS
     Dates: start: 20100101
  2. LANTUS [Suspect]
     Indication: TYPE 2 DIABETES MELLITUS
     Dosage: UP TO 100 UNITIS
     Route: 058
  3. ALL OTHER THERAPEUTIC PRODUCTS [Concomitant]

REACTIONS (7)
  - SKIN DISORDER [None]
  - FUNGAL INFECTION [None]
  - PAIN [None]
  - HYPERGLYCAEMIA [None]
  - ERYTHEMA [None]
  - SKIN EXFOLIATION [None]
  - HAEMORRHAGE [None]
